FAERS Safety Report 10070609 (Version 2)
Quarter: 2014Q2

REPORT INFORMATION
  Report Type: Spontaneous
  Country: US (occurrence: US)
  Receive Date: 20140410
  Receipt Date: 20140604
  Transmission Date: 20141212
  Serious: Yes (Life-Threatening, Hospitalization, Disabling)
  Sender: FDA-Public Use
  Company Number: US-BAYER-2014-053324

PATIENT
  Age: 21 Year
  Sex: Female
  Weight: 87.98 kg

DRUGS (10)
  1. YAZ [Suspect]
     Dosage: UNK
  2. YASMIN [Suspect]
     Dosage: UNK
  3. OCELLA [Suspect]
     Dosage: UNK
  4. GIANVI [Suspect]
     Dosage: UNK
  5. BEYAZ [Suspect]
     Dosage: UNK
  6. SAFYRAL [Suspect]
     Dosage: UNK
  7. ZARAH [Suspect]
     Dosage: UNK
  8. MOTRIN [Concomitant]
     Route: 048
  9. PRENATAL VITAMINS [Concomitant]
     Route: 048
  10. CEPHALEXIN [Concomitant]
     Dosage: 250 MG, UNK
     Dates: start: 20040816

REACTIONS (7)
  - Pulmonary embolism [Recovered/Resolved]
  - Injury [Recovered/Resolved]
  - Pain [None]
  - General physical health deterioration [Recovered/Resolved]
  - Anxiety [None]
  - Anhedonia [None]
  - Emotional distress [None]
